FAERS Safety Report 5224377-2 (Version None)
Quarter: 2007Q1

REPORT INFORMATION
  Report Type: 
  Country: None (occurrence: None)
  Receive Date: 20070130
  Receipt Date: 20070122
  Transmission Date: 20070707
  Serious: Yes (Other)
  Sender: FDA-Public Use
  Company Number: CA-PFIZER INC-2007005279

PATIENT
  Sex: Male
  Weight: 113.4 kg

DRUGS (18)
  1. XALATAN [Suspect]
     Indication: GLAUCOMA
     Route: 047
  2. METFORMIN HCL [Concomitant]
     Indication: DIABETES MELLITUS
     Route: 048
  3. GLUCONORM [Concomitant]
     Indication: DIABETES MELLITUS
     Route: 048
  4. ALPHAGAN [Concomitant]
     Route: 047
  5. BRIMONIDINE TARTRATE [Concomitant]
  6. DRISTAN [Concomitant]
  7. ALL OTHER THERAPEUTIC PRODUCTS [Concomitant]
     Route: 048
  8. ATACAND [Concomitant]
     Route: 048
  9. DARVON-N [Concomitant]
     Route: 048
  10. LIPITOR [Concomitant]
     Route: 048
  11. EZETROL [Concomitant]
     Route: 048
  12. ASAPHEN [Concomitant]
     Route: 048
  13. PMS-METOPROLOL [Concomitant]
     Route: 048
  14. SYNTHROID [Concomitant]
     Route: 048
  15. CALTRATE + D [Concomitant]
     Route: 048
  16. INDOCID [Concomitant]
     Route: 048
  17. ALL OTHER THERAPEUTIC PRODUCTS [Concomitant]
     Route: 048
  18. VITA-VIM [Concomitant]
     Route: 048

REACTIONS (1)
  - BLOOD GLUCOSE INCREASED [None]
